FAERS Safety Report 6464265-7 (Version None)
Quarter: 2009Q4

REPORT INFORMATION
  Report Type: 
  Country: None (occurrence: None)
  Receive Date: 20091130
  Receipt Date: 20091130
  Transmission Date: 20100525
  Serious: Yes (Life-Threatening, Hospitalization)
  Sender: FDA-Public Use
  Company Number: None

PATIENT
  Age: 78 Year
  Sex: Female
  Weight: 77.3 kg

DRUGS (2)
  1. SEPTRA DS [Suspect]
     Indication: CANDIDIASIS
     Dosage: 1 TSP. 4 X A DAY ORAL
     Route: 048
  2. SEPTRA DS [Suspect]
     Indication: STEVENS-JOHNSON SYNDROME
     Dosage: 1 TSP. 4 X A DAY ORAL
     Route: 048

REACTIONS (4)
  - CANDIDIASIS [None]
  - DYSPEPSIA [None]
  - FEELING COLD [None]
  - STEVENS-JOHNSON SYNDROME [None]
